FAERS Safety Report 8924061 (Version 1)
Quarter: 2012Q4

REPORT INFORMATION
  Report Type: 
  Country: GB (occurrence: GB)
  Receive Date: 20121126
  Receipt Date: 20121126
  Transmission Date: 20130627
  Serious: Yes (Other)
  Sender: FDA-Public Use
  Company Number: PHHY2012GB105792

PATIENT

DRUGS (5)
  1. DOXAZOSIN [Suspect]
  2. METFORMIN [Concomitant]
     Indication: TYPE 2 DIABETES MELLITUS
  3. SIMVASTATIN [Concomitant]
  4. GLICLAZIDE [Concomitant]
     Indication: TYPE 2 DIABETES MELLITUS
  5. BENDROFLUMETHIAZIDE [Concomitant]

REACTIONS (11)
  - Anaemia [Unknown]
  - Limb discomfort [Not Recovered/Not Resolved]
  - Erythema [Recovered/Resolved]
  - Weight increased [Recovered/Resolved]
  - Rash macular [Recovered/Resolved]
  - Pain in extremity [Not Recovered/Not Resolved]
  - Asthenia [Unknown]
  - Malaise [Unknown]
  - Dyspnoea [Unknown]
  - Myalgia [Not Recovered/Not Resolved]
  - Arthralgia [Not Recovered/Not Resolved]
